FAERS Safety Report 5898606-6 (Version None)
Quarter: 2008Q3

REPORT INFORMATION
  Report Type: 
  Country: None (occurrence: None)
  Receive Date: 20080925
  Receipt Date: 20080415
  Transmission Date: 20090109
  Serious: No
  Sender: FDA-Public Use
  Company Number: A0711614A

PATIENT
  Age: 56 Year
  Sex: Female

DRUGS (3)
  1. WELLBUTRIN XL [Suspect]
     Indication: DEPRESSION
     Dosage: 150MG PER DAY
     Route: 048
     Dates: start: 20080124, end: 20080301
  2. WELLBUTRIN SR [Suspect]
     Indication: DEPRESSION
     Route: 048
     Dates: start: 20080201, end: 20080201
  3. NO CONCURRENT MEDICATION [Concomitant]

REACTIONS (7)
  - AGITATION [None]
  - ANGER [None]
  - CRYING [None]
  - DIZZINESS [None]
  - DRUG INEFFECTIVE [None]
  - INSOMNIA [None]
  - NAUSEA [None]
